FAERS Safety Report 19445514 (Version 2)
Quarter: 2022Q1

REPORT INFORMATION
  Report Type: Spontaneous
  Country: GB (occurrence: GB)
  Receive Date: 20210622
  Receipt Date: 20220209
  Transmission Date: 20220423
  Serious: Yes (Hospitalization, Other)
  Sender: FDA-Public Use
  Company Number: GB-EMA-DD-20191217-SHARMA_D2-090642

PATIENT
  Age: 8 Year
  Sex: Female
  Weight: 23.35 kg

DRUGS (23)
  1. ACETAMINOPHEN [Suspect]
     Active Substance: ACETAMINOPHEN
     Indication: Product used for unknown indication
     Dosage: UNK UNK, ONCE A DAY (PM)
     Route: 048
  2. LOPERAMIDE [Suspect]
     Active Substance: LOPERAMIDE
     Indication: Diarrhoea
     Dosage: 2 MILLIGRAM, FOUR TIMES/DAY (2 MG ONE CAPSULE UP TO FOUR TIMES A DAY)
     Route: 065
  3. RANITIDINE [Suspect]
     Active Substance: RANITIDINE
     Indication: Gastrooesophageal reflux disease
     Dosage: UNK UNK, ONCE A DAY
     Route: 048
  4. RANITIDINE [Suspect]
     Active Substance: RANITIDINE
     Dosage: UNK
     Route: 065
  5. RANITIDINE [Suspect]
     Active Substance: RANITIDINE
     Dosage: 50 MILLIGRAM, TWO TIMES A DAY
     Route: 065
     Dates: start: 20191018
  6. VANDETANIB [Suspect]
     Active Substance: VANDETANIB
     Indication: Brain stem glioma
     Dosage: 65 MILLIGRAM, ONCE A DAY
     Route: 048
     Dates: start: 20191009, end: 20191014
  7. VANDETANIB [Suspect]
     Active Substance: VANDETANIB
     Dosage: 100 MILLIGRAM, EVERY OTHER DAY (65 MG/M2)
     Route: 048
     Dates: start: 20191018, end: 20200207
  8. VANDETANIB [Suspect]
     Active Substance: VANDETANIB
     Dosage: 54 MILLIGRAM, ONCE A DAY (54 MG/M2, QD)
     Route: 048
     Dates: start: 20200212, end: 20200302
  9. VANDETANIB [Suspect]
     Active Substance: VANDETANIB
     Dosage: 65 MILLIGRAM/SQ. METER, ONCE A DAY
     Route: 048
     Dates: start: 20200316, end: 20200420
  10. EVEROLIMUS [Suspect]
     Active Substance: EVEROLIMUS
     Indication: Brain stem glioma
     Dosage: UNK UNK, ONCE A DAY (5 MG ON MONDAY,WEDNESDAY AND FRIDAY AND 2.5 MG)
     Route: 048
     Dates: start: 20190717, end: 20191014
  11. EVEROLIMUS [Suspect]
     Active Substance: EVEROLIMUS
     Dosage: UNK, ONCE A DAY 5 MG ON MONDAY, WEDNESDAY AND FRIDAY AND 2.5 MG ON TUESDAY)
     Route: 048
     Dates: start: 20191001
  12. EVEROLIMUS [Suspect]
     Active Substance: EVEROLIMUS
     Dosage: 2.5 MILLIGRAM, ONCE A DAY (TUESDAY/THURSDAY/SATURDAY/SUNDAY)
     Route: 048
     Dates: start: 20200212
  13. EVEROLIMUS [Suspect]
     Active Substance: EVEROLIMUS
     Dosage: 5 MILLIGRAM, ONCE A DAY (MONDAY/WEDNESDAY/FRIDAY)
     Route: 048
     Dates: start: 20200212
  14. EVEROLIMUS [Suspect]
     Active Substance: EVEROLIMUS
     Dosage: 5 MILLIGRAM, ONCE A DAY (MONDAY/WEDNESDAY/FRIDAY)
     Route: 048
     Dates: start: 20210207
  15. EVEROLIMUS [Suspect]
     Active Substance: EVEROLIMUS
     Dosage: 2.5 MILLIGRAM, ONCE A DAY
     Route: 048
     Dates: start: 20210207
  16. DEXAMETHASONE [Suspect]
     Active Substance: DEXAMETHASONE
     Indication: Product used for unknown indication
     Dosage: UNK
     Route: 065
  17. DEXAMETHASONE [Suspect]
     Active Substance: DEXAMETHASONE
     Dosage: 9.2 MILLIGRAM, ONCE A DAY
     Route: 048
     Dates: start: 20200207, end: 20200221
  18. DEXAMETHASONE [Suspect]
     Active Substance: DEXAMETHASONE
     Dosage: 7 MILLIGRAM, ONCE A DAY
     Route: 048
     Dates: start: 20200210
  19. DEXAMETHASONE [Suspect]
     Active Substance: DEXAMETHASONE
     Dosage: 3.5 MILLIGRAM, ONCE A DAY
     Route: 048
     Dates: start: 20200212
  20. DEXAMETHASONE [Suspect]
     Active Substance: DEXAMETHASONE
     Dosage: 1.6 MILLIGRAM, ONCE A DAY
     Route: 048
     Dates: start: 20200215, end: 20200221
  21. LANSOPRAZOLE [Suspect]
     Active Substance: LANSOPRAZOLE
     Indication: Product used for unknown indication
     Dosage: UNK
     Route: 065
  22. COTRIMOXAZOLE [Concomitant]
     Active Substance: SULFAMETHOXAZOLE\TRIMETHOPRIM
     Indication: Product used for unknown indication
     Dosage: 720 MILLIGRAM, ONCE A DAY (360 MG, BID (7.5 ML) ON SATURDAYS AND SUNDAYS)
     Route: 065
  23. DEXAMETHASONE [Concomitant]
     Active Substance: DEXAMETHASONE
     Indication: Product used for unknown indication
     Dosage: UNK (VARIABLE; 4MG BD WEANED TO 0.5MG SECOND DAILY)
     Route: 065
     Dates: start: 20191101, end: 20200221

REACTIONS (24)
  - Facial paralysis [Recovered/Resolved]
  - Hemiparesis [Recovered/Resolved]
  - Ataxia [Recovered/Resolved]
  - Brain stem glioma [Unknown]
  - Electrocardiogram QT prolonged [Recovered/Resolved]
  - Hypertension [Recovered/Resolved]
  - Disease progression [Unknown]
  - Malignant neoplasm progression [Unknown]
  - White blood cell count decreased [Not Recovered/Not Resolved]
  - Blood creatinine increased [Recovered/Resolved]
  - Flatulence [Recovered/Resolved]
  - Blood cholesterol increased [Not Recovered/Not Resolved]
  - Hypophagia [Not Recovered/Not Resolved]
  - Reflux gastritis [Recovered/Resolved]
  - Blood triglycerides increased [Unknown]
  - Hypophosphataemia [Recovered/Resolved]
  - Neutrophil count decreased [Recovered/Resolved]
  - Abdominal distension [Recovered/Resolved]
  - Lymphocyte count decreased [Not Recovered/Not Resolved]
  - Alanine aminotransferase increased [Recovered/Resolved]
  - Stomatitis [Recovered/Resolved]
  - Myoclonus [Recovered/Resolved]
  - Ocular hyperaemia [Recovered/Resolved]
  - Product use in unapproved indication [Unknown]

NARRATIVE: CASE EVENT DATE: 20190111
